FAERS Safety Report 13835176 (Version 1)
Quarter: 2017Q3

REPORT INFORMATION
  Report Type: Spontaneous
  Country: US (occurrence: US)
  Receive Date: 20170804
  Receipt Date: 20170804
  Transmission Date: 20171127
  Serious: Yes (Other)
  Sender: FDA-Public Use
  Company Number: None

PATIENT
  Age: 67 Year
  Sex: Female
  Weight: 113.5 kg

DRUGS (1)
  1. BUPROPION XL, 300 MG [Suspect]
     Active Substance: BUPROPION
     Indication: MAJOR DEPRESSION
     Route: 048
     Dates: start: 20170717, end: 20170803

REACTIONS (1)
  - Depression [None]

NARRATIVE: CASE EVENT DATE: 20170803
